FAERS Safety Report 5139873-6 (Version None)
Quarter: 2006Q4

REPORT INFORMATION
  Report Type: 
  Country: None (occurrence: None)
  Receive Date: 20061026
  Receipt Date: 20061026
  Transmission Date: 20070319
  Serious: Yes (Hospitalization)
  Sender: FDA-Public Use
  Company Number: None

PATIENT
  Sex: Male
  Weight: 84.6 kg

DRUGS (1)
  1. METOPROLOL SUCCINATE [Suspect]
     Indication: HEART RATE ABNORMAL
     Dosage: 75MG BID PO
     Route: 048
     Dates: start: 20060801

REACTIONS (3)
  - HEART RATE DECREASED [None]
  - ORTHOSTATIC HYPOTENSION [None]
  - PRESYNCOPE [None]
